FAERS Safety Report 5643388-6 (Version None)
Quarter: 2008Q1

REPORT INFORMATION
  Report Type: 
  Country: None (occurrence: None)
  Receive Date: 20080228
  Receipt Date: 20080225
  Transmission Date: 20080703
  Serious: Yes (Death, Life-Threatening)
  Sender: FDA-Public Use
  Company Number: AU-ASTRAZENECA-2008AP01376

PATIENT
  Age: 10888 Day
  Sex: Female
  Weight: 90 kg

DRUGS (9)
  1. PROPOFOL [Suspect]
     Route: 042
     Dates: start: 20070426, end: 20070426
  2. XYLOCAINE W/ EPINEPHRINE [Suspect]
     Dates: start: 20070426
  3. HYPNOVEL [Suspect]
     Dates: start: 20070426, end: 20070426
  4. KEFLIN [Suspect]
     Route: 042
     Dates: start: 20070426, end: 20070426
  5. SERETIDE ACCUHALER [Suspect]
     Route: 055
     Dates: start: 20070426
  6. VENTOLIN [Suspect]
     Route: 055
     Dates: start: 20070426
  7. FERRAGRAD C [Concomitant]
  8. SODIBIC [Concomitant]
  9. TRITACE [Concomitant]

REACTIONS (2)
  - ANAPHYLACTIC REACTION [None]
  - CARDIO-RESPIRATORY ARREST [None]
